FAERS Safety Report 6423101-5 (Version None)
Quarter: 2009Q4

REPORT INFORMATION
  Report Type: 
  Country: None (occurrence: None)
  Receive Date: 20091102
  Receipt Date: 20091020
  Transmission Date: 20100525
  Serious: No
  Sender: FDA-Public Use
  Company Number: US-ELI_LILLY_AND_COMPANY-US200910005183

PATIENT
  Sex: Female

DRUGS (2)
  1. CYMBALTA [Suspect]
     Indication: ANXIETY
     Dosage: 30 MG, DAILY (1/D)
     Dates: start: 20080101
  2. AMBIEN [Concomitant]

REACTIONS (3)
  - BREAST CYST [None]
  - CHOLELITHIASIS [None]
  - HEPATIC ENZYME INCREASED [None]
